FAERS Safety Report 9620318 (Version 1)
Quarter: 2013Q4

REPORT INFORMATION
  Report Type: Spontaneous
  Country: US (occurrence: US)
  Receive Date: 20131014
  Receipt Date: 20131014
  Transmission Date: 20140711
  Serious: No
  Sender: FDA-Public Use
  Company Number: US-ALLERGAN-1217711US

PATIENT
  Age: 57 Year
  Sex: Female

DRUGS (3)
  1. ALPHAGAN P [Suspect]
     Indication: INTRAOCULAR PRESSURE INCREASED
     Dosage: 2 GTT, TID
     Route: 047
     Dates: start: 2007
  2. HCTZ [Concomitant]
     Indication: HYPERTENSION
     Dosage: UNK, QD
     Route: 048
     Dates: start: 2012
  3. REWETTING DROPS NOS [Concomitant]
     Indication: CONTACT LENS THERAPY
     Dosage: UNK, PRN
     Route: 047
     Dates: start: 2012

REACTIONS (2)
  - Glassy eyes [Unknown]
  - Drug ineffective [Unknown]
